FAERS Safety Report 8494871-X (Version None)
Quarter: 2012Q3

REPORT INFORMATION
  Report Type: 
  Country: None (occurrence: None)
  Receive Date: 20120709
  Receipt Date: 20120626
  Transmission Date: 20120928
  Serious: Yes (Hospitalization)
  Sender: FDA-Public Use
  Company Number: CN-NOVOPROD-354631

PATIENT
  Age: 38 Year
  Sex: Male
  Weight: 84 kg

DRUGS (6)
  1. NOVOLOG MIX 70/30 [Suspect]
     Dosage: 22 U MORNING+ 8 U NOON + 18 U EVENING
     Route: 058
  2. NOVOLOG MIX 70/30 [Suspect]
     Dosage: UNK UNK, QD
     Route: 058
  3. NOVOLOG MIX 70/30 [Suspect]
     Dosage: UNK
     Route: 058
  4. METFORMIN HCL [Concomitant]
     Indication: TYPE 2 DIABETES MELLITUS
     Dosage: 1 TAB, QD
     Route: 048
     Dates: start: 20120510
  5. GLUCOBAY [Concomitant]
     Indication: TYPE 2 DIABETES MELLITUS
     Dosage: 1 TAB, QD
     Route: 048
     Dates: start: 20120510
  6. NOVOLOG MIX 70/30 [Suspect]
     Indication: TYPE 2 DIABETES MELLITUS
     Dosage: 22 U MORNING+ 8 U NOON + 18UEVENING
     Route: 058
     Dates: start: 20080301

REACTIONS (3)
  - PALPITATIONS [None]
  - DIABETES MELLITUS INADEQUATE CONTROL [None]
  - PRODUCT COUNTERFEIT [None]
